FAERS Safety Report 25383964 (Version 1)
Quarter: 2025Q2

REPORT INFORMATION
  Report Type: Report from Study
  Country: US (occurrence: US)
  Receive Date: 20250602
  Receipt Date: 20250602
  Transmission Date: 20250717
  Serious: Yes (Death, Hospitalization)
  Sender: ALEXION PHARMACEUTICALS
  Company Number: US-AstraZeneca-CH-00880535A

PATIENT
  Age: 74 Year

DRUGS (1)
  1. DAPAGLIFLOZIN [Suspect]
     Active Substance: DAPAGLIFLOZIN
     Route: 065

REACTIONS (4)
  - Pneumonia [Fatal]
  - Cardiac failure [Fatal]
  - Muscular dystrophy [Fatal]
  - Renal failure [Fatal]
